FAERS Safety Report 4752283-6 (Version None)
Quarter: 2005Q3

REPORT INFORMATION
  Report Type: 
  Country: None (occurrence: None)
  Receive Date: 20050825
  Receipt Date: 20050815
  Transmission Date: 20060218
  Serious: Yes (Hospitalization)
  Sender: FDA-Public Use
  Company Number: US-NOVOPROD-246248

PATIENT
  Age: 74 Year
  Sex: Male
  Weight: 70 kg

DRUGS (2)
  1. NOVOLIN N [Suspect]
     Indication: DIABETES MELLITUS
     Dosage: 30 IU, UNK
     Route: 058
     Dates: start: 19800101
  2. NOVOLIN R [Suspect]
     Indication: DIABETES MELLITUS
     Dosage: SLIDING SCALE, PRN
     Route: 058
     Dates: start: 19800101

REACTIONS (2)
  - BLOOD GLUCOSE FLUCTUATION [None]
  - DYSPNOEA [None]
